FAERS Safety Report 7620347-5 (Version None)
Quarter: 2011Q3

REPORT INFORMATION
  Report Type: 
  Country: None (occurrence: None)
  Receive Date: 20110719
  Receipt Date: 20110715
  Transmission Date: 20111222
  Serious: Yes (Death)
  Sender: FDA-Public Use
  Company Number: PHHY2011AR64118

PATIENT
  Sex: Female

DRUGS (1)
  1. EXELON [Suspect]
     Indication: COGNITIVE DISORDER
     Dosage: 9.5 MG (PATCH 10, 1 PATCH DAILY)
     Route: 062
     Dates: end: 20100401

REACTIONS (1)
  - OESOPHAGEAL PERFORATION [None]
